FAERS Safety Report 14482149 (Version 2)
Quarter: 2018Q1

REPORT INFORMATION
  Report Type: Report from Study
  Country: US (occurrence: US)
  Receive Date: 20180202
  Receipt Date: 20180216
  Transmission Date: 20180509
  Serious: Yes (Other)
  Sender: FDA-Public Use
  Company Number: US-ACTELION-A-US2017-154271

PATIENT
  Age: 55 Year
  Sex: Female
  Weight: 78.5 kg

DRUGS (3)
  1. COUMADIN [Concomitant]
     Active Substance: WARFARIN SODIUM
  2. ADEMPAS [Concomitant]
     Active Substance: RIOCIGUAT
     Dosage: 2.5 MG, TID
  3. OPSUMIT [Suspect]
     Active Substance: MACITENTAN
     Indication: PULMONARY HYPERTENSION
     Dosage: 10 MG, QD
     Route: 048
     Dates: start: 20161216

REACTIONS (6)
  - Condition aggravated [Unknown]
  - Muscle spasms [Unknown]
  - Angioplasty [Unknown]
  - Gastrooesophageal reflux disease [Unknown]
  - Pulmonary endarterectomy [Unknown]
  - Malaise [Unknown]
